FAERS Safety Report 5501263-1 (Version None)
Quarter: 2007Q4

REPORT INFORMATION
  Report Type: 
  Country: None (occurrence: None)
  Receive Date: 20071029
  Receipt Date: 20071022
  Transmission Date: 20080405
  Serious: Yes (Hospitalization)
  Sender: FDA-Public Use
  Company Number: US-MERCK-0706USA00918

PATIENT
  Age: 65 Year
  Sex: Female

DRUGS (4)
  1. FOSAMAX [Suspect]
     Indication: OSTEOPENIA
     Route: 048
     Dates: start: 20050810, end: 20060702
  2. PREDNISONE [Concomitant]
     Route: 065
  3. FOLIC ACID [Concomitant]
     Route: 065
  4. CORTICOSTEROIDS (UNSPECIFIED) [Concomitant]
     Route: 065
     Dates: start: 20050324, end: 20051101

REACTIONS (9)
  - CARDIAC MURMUR [None]
  - DEPRESSION [None]
  - EYE DISORDER [None]
  - FALL [None]
  - INJURY [None]
  - LOOSE TOOTH [None]
  - RENAL DISORDER [None]
  - RENAL HAEMORRHAGE [None]
  - RESORPTION BONE INCREASED [None]
